FAERS Safety Report 14292424 (Version 3)
Quarter: 2018Q1

REPORT INFORMATION
  Report Type: Spontaneous
  Country: HU (occurrence: HU)
  Receive Date: 20171215
  Receipt Date: 20180315
  Transmission Date: 20180509
  Serious: Yes (Hospitalization, Other)
  Sender: FDA-Public Use
  Company Number: HU-ARALEZ PHARMACEUTICALS R+D INC.-2017-ARA-002024

PATIENT
  Age: 58 Year
  Sex: Female

DRUGS (15)
  1. AMLODIPINE [Suspect]
     Active Substance: AMLODIPINE BESYLATE
     Indication: HYPERTENSION
     Dosage: 5 MG, UNK
     Route: 065
     Dates: start: 20040223, end: 20140403
  2. ENALAPRIL MALEATE W/HYDROCHLOROTHIAZIDE [Suspect]
     Active Substance: ENALAPRIL MALEATE\HYDROCHLOROTHIAZIDE
     Indication: HYPERTENSION
     Dosage: UNK
     Route: 065
     Dates: start: 20040223, end: 20131213
  3. CARVEDILOL. [Suspect]
     Active Substance: CARVEDILOL
     Indication: HYPERTENSION
     Dosage: 25 MG, QD
     Route: 065
     Dates: start: 20050923, end: 20140403
  4. DOXAZOSIN [Suspect]
     Active Substance: DOXAZOSIN\DOXAZOSIN MESYLATE
     Indication: PRODUCT USED FOR UNKNOWN INDICATION
     Dosage: 2 MG, UNK
  5. MINOXIDIL. [Suspect]
     Active Substance: MINOXIDIL
     Indication: HYPERTENSION
     Dosage: 1-DAILY
     Route: 065
     Dates: start: 20110104, end: 20140403
  6. DIHYDRALAZINE [Suspect]
     Active Substance: DIHYDRALAZINE
     Indication: PRODUCT USED FOR UNKNOWN INDICATION
     Dosage: 1X25; 0-25-25; 0-12.5-50, UNK
     Dates: start: 20090220
  7. URAPIDIL [Suspect]
     Active Substance: URAPIDIL
     Indication: HYPERTENSION
     Dosage: 30 MG, UNK
     Route: 065
     Dates: start: 20040223, end: 20140403
  8. DOXAZOSIN [Suspect]
     Active Substance: DOXAZOSIN\DOXAZOSIN MESYLATE
     Dosage: UNK
  9. NITROGLYCERIN. [Suspect]
     Active Substance: NITROGLYCERIN
     Indication: HYPERTENSION
     Dosage: UNK
     Route: 065
     Dates: start: 20090220, end: 20140403
  10. METOPROLOL SUCCINATE. [Suspect]
     Active Substance: METOPROLOL SUCCINATE
     Indication: HYPERTENSION
     Dosage: 50 MG, UNK
     Route: 048
     Dates: start: 20040223, end: 20050829
  11. DOXAZOSIN [Suspect]
     Active Substance: DOXAZOSIN\DOXAZOSIN MESYLATE
     Indication: HYPERTENSION
     Dosage: 4 MG, UNK
     Route: 065
     Dates: start: 20040325, end: 20110224
  12. FUROSEMIDE. [Suspect]
     Active Substance: FUROSEMIDE
     Indication: PRODUCT USED FOR UNKNOWN INDICATION
     Dosage: 2X40MG OR 3X40MG, PER WEEK
     Dates: start: 20151215
  13. PERINDOPRIL/INDAPAMIDE [Suspect]
     Active Substance: INDAPAMIDE\PERINDOPRIL
     Indication: HYPERTENSION
     Dosage: 2X2.5 MG/0,625 MG
     Route: 065
     Dates: start: 20140403
  14. CLOPIDOGREL [Concomitant]
     Active Substance: CLOPIDOGREL BISULFATE
     Indication: PRODUCT USED FOR UNKNOWN INDICATION
     Dosage: UNK
  15. NIFEDIPINE. [Suspect]
     Active Substance: NIFEDIPINE
     Indication: HYPERTENSION
     Dosage: UNK
     Dates: start: 20090220, end: 20120321

REACTIONS (1)
  - Drug ineffective [Unknown]
